FAERS Safety Report 9330742 (Version 1)
Quarter: 2013Q2

REPORT INFORMATION
  Report Type: Spontaneous
  Country: ES (occurrence: ES)
  Receive Date: 20130605
  Receipt Date: 20130605
  Transmission Date: 20140414
  Serious: Yes (Death)
  Sender: FDA-Public Use
  Company Number: ES-JNJFOC-20130515563

PATIENT
  Sex: 0

DRUGS (27)
  1. DOXORUBICIN [Suspect]
     Indication: LEUKAEMIA
     Dosage: OVER 15 MINUTES
     Route: 042
  2. DOXORUBICIN [Suspect]
     Indication: BURKITT^S LYMPHOMA
     Dosage: OVER 15 MINUTES
     Route: 042
  3. CYCLOPHOSPHAMIDE [Suspect]
     Indication: LEUKAEMIA
     Dosage: OVER 1 HOUR
     Route: 042
  4. CYCLOPHOSPHAMIDE [Suspect]
     Indication: BURKITT^S LYMPHOMA
     Dosage: OVER 1 HOUR
     Route: 042
  5. PREDNISONE [Suspect]
     Indication: LEUKAEMIA
     Route: 040
  6. PREDNISONE [Suspect]
     Indication: BURKITT^S LYMPHOMA
     Route: 040
  7. RITUXIMAB [Suspect]
     Indication: LEUKAEMIA
     Dosage: OVER 4 HOUR
     Route: 042
  8. RITUXIMAB [Suspect]
     Indication: BURKITT^S LYMPHOMA
     Dosage: OVER 4 HOUR
     Route: 042
  9. VINCRISTINE [Suspect]
     Indication: LEUKAEMIA
     Route: 040
  10. VINCRISTINE [Suspect]
     Indication: BURKITT^S LYMPHOMA
     Route: 040
  11. METHOTREXATE [Suspect]
     Indication: LEUKAEMIA
     Dosage: OVER 24 HOURS
     Route: 042
  12. METHOTREXATE [Suspect]
     Indication: BURKITT^S LYMPHOMA
     Dosage: OVER 24 HOURS
     Route: 042
  13. DEXAMETHASONE [Suspect]
     Indication: LEUKAEMIA
     Route: 040
  14. DEXAMETHASONE [Suspect]
     Indication: BURKITT^S LYMPHOMA
     Route: 040
  15. TENIPOSIDE [Suspect]
     Indication: LEUKAEMIA
     Dosage: OVER 1 HOUR
     Route: 042
  16. TENIPOSIDE [Suspect]
     Indication: BURKITT^S LYMPHOMA
     Dosage: OVER 1 HOUR
     Route: 042
  17. CYTARABINE [Suspect]
     Indication: LEUKAEMIA
     Dosage: OVER 1 HOUR/12 HOURS
     Route: 042
  18. CYTARABINE [Suspect]
     Indication: BURKITT^S LYMPHOMA
     Dosage: OVER 1 HOUR/12 HOURS
     Route: 042
  19. VINDESINE [Suspect]
     Indication: LEUKAEMIA
     Dosage: MAXIMUM 5 MG/M2
     Route: 042
  20. VINDESINE [Suspect]
     Indication: BURKITT^S LYMPHOMA
     Dosage: MAXIMUM 5 MG/M2
     Route: 042
  21. ETOPOSIDE [Suspect]
     Indication: LEUKAEMIA
     Dosage: OVER 1 HOUR
     Route: 042
  22. ETOPOSIDE [Suspect]
     Indication: BURKITT^S LYMPHOMA
     Dosage: OVER 1 HOUR
     Route: 042
  23. IPHOSPHAMIDE [Suspect]
     Indication: LEUKAEMIA
     Dosage: OVER 1 HOUR
     Route: 042
  24. IPHOSPHAMIDE [Suspect]
     Indication: BURKITT^S LYMPHOMA
     Dosage: OVER 1 HOUR
     Route: 042
  25. METHOTREXATE [Suspect]
     Indication: PROPHYLAXIS
     Route: 037
  26. DEXAMETHASONE [Suspect]
     Indication: PROPHYLAXIS
     Route: 037
  27. CYTARABINE [Suspect]
     Indication: PROPHYLAXIS
     Route: 037

REACTIONS (1)
  - Torulopsis infection [Fatal]
